FAERS Safety Report 11767527 (Version 1)
Quarter: 2015Q4

REPORT INFORMATION
  Report Type: Spontaneous
  Country: SV (occurrence: SV)
  Receive Date: 20151123
  Receipt Date: 20151123
  Transmission Date: 20160304
  Serious: Yes (Other)
  Sender: FDA-Public Use
  Company Number: SV-JNJFOC-20151119295

PATIENT
  Age: 19 Year
  Sex: Female

DRUGS (1)
  1. INVEGA SUSTENNA [Suspect]
     Active Substance: PALIPERIDONE PALMITATE
     Indication: PRODUCT USED FOR UNKNOWN INDICATION
     Route: 030
     Dates: start: 2015

REACTIONS (2)
  - Hyperprolactinaemia [Unknown]
  - Pituitary tumour benign [Unknown]
